FAERS Safety Report 14788529 (Version 2)
Quarter: 2018Q2

REPORT INFORMATION
  Report Type: Spontaneous
  Country: BS (occurrence: BS)
  Receive Date: 20180423
  Receipt Date: 20180425
  Transmission Date: 20180711
  Serious: Yes (Death, Other)
  Sender: FDA-Public Use
  Company Number: BS-B.I. PHARMACEUTICALS,INC./RIDGEFIELD-2018-BI-021759

PATIENT
  Age: 71 Year
  Sex: Female

DRUGS (1)
  1. PRAXBIND [Suspect]
     Active Substance: IDARUCIZUMAB
     Indication: PRODUCT USED FOR UNKNOWN INDICATION
     Route: 065
     Dates: start: 20180418

REACTIONS (1)
  - Death [Fatal]

NARRATIVE: CASE EVENT DATE: 20180419
